FAERS Safety Report 4430904-5 (Version None)
Quarter: 2004Q3

REPORT INFORMATION
  Report Type: 
  Country: None (occurrence: None)
  Receive Date: 20040823
  Receipt Date: 20040811
  Transmission Date: 20050211
  Serious: Yes (Other)
  Sender: FDA-Public Use
  Company Number: BR-ROCHE-377595

PATIENT
  Age: 25 Year
  Sex: Male
  Weight: 140 kg

DRUGS (2)
  1. PEGASYS [Suspect]
     Indication: HEPATITIS C
     Route: 058
     Dates: start: 20040601, end: 20040730
  2. RIBAVIRIN [Concomitant]
     Indication: HEPATITIS C
     Route: 048
     Dates: start: 20040601, end: 20040730

REACTIONS (8)
  - DYSGEUSIA [None]
  - ERYTHEMA [None]
  - LEUKOPENIA [None]
  - NAUSEA [None]
  - PLATELET COUNT DECREASED [None]
  - PURPURA [None]
  - PYREXIA [None]
  - VOMITING [None]
